FAERS Safety Report 21324532 (Version 1)
Quarter: 2022Q3

REPORT INFORMATION
  Report Type: Spontaneous
  Country: JP (occurrence: JP)
  Receive Date: 20220912
  Receipt Date: 20220912
  Transmission Date: 20221027
  Serious: Yes (Other)
  Sender: FDA-Public Use
  Company Number: JP-BAYER-2021-201574

PATIENT
  Age: 71 Year
  Sex: Male

DRUGS (3)
  1. XARELTO [Suspect]
     Active Substance: RIVAROXABAN
     Indication: Atrial fibrillation
     Dosage: 15 MG, QD
     Route: 048
  2. FUROSEMIDE [Concomitant]
     Active Substance: FUROSEMIDE
  3. AZOSEMIDE [Concomitant]
     Active Substance: AZOSEMIDE
     Dosage: 60 MG, QD

REACTIONS (1)
  - Endocarditis [Unknown]
